FAERS Safety Report 10098892 (Version 1)
Quarter: 2014Q2

REPORT INFORMATION
  Report Type: Spontaneous
  Country: FR (occurrence: FR)
  Receive Date: 20140423
  Receipt Date: 20140423
  Transmission Date: 20141212
  Serious: Yes (Hospitalization)
  Sender: FDA-Public Use
  Company Number: FR-SA-2014SA045551

PATIENT
  Age: 80 Year
  Sex: Female

DRUGS (10)
  1. FOLIC ACID [Suspect]
     Indication: PROPHYLAXIS
     Route: 048
     Dates: start: 201307, end: 20140311
  2. FUROSEMIDE [Suspect]
     Indication: CARDIAC FAILURE
     Route: 048
     Dates: start: 201311
  3. GABAPENTIN [Suspect]
     Indication: RESTLESS LEGS SYNDROME
     Route: 048
  4. VENLAFAXINE [Suspect]
     Indication: DEPRESSION
     Route: 048
  5. CORTANCYL [Suspect]
     Indication: RHEUMATOID ARTHRITIS
     Route: 048
     Dates: start: 2013
  6. IMETH [Suspect]
     Indication: RHEUMATOID ARTHRITIS
     Route: 048
     Dates: start: 201307, end: 201401
  7. IMETH [Suspect]
     Indication: RHEUMATOID ARTHRITIS
     Route: 048
     Dates: start: 201401, end: 20140311
  8. CARDENSIEL [Suspect]
     Indication: CARDIAC FAILURE
     Route: 048
     Dates: start: 201311
  9. ALDACTONE [Suspect]
     Indication: CARDIAC FAILURE
     Route: 048
     Dates: start: 201311
  10. ESOMEPRAZOLE [Concomitant]

REACTIONS (1)
  - Systemic sclerosis [Not Recovered/Not Resolved]
